FAERS Safety Report 6775429-7 (Version None)
Quarter: 2010Q2

REPORT INFORMATION
  Report Type: 
  Country: None (occurrence: None)
  Receive Date: 20100617
  Receipt Date: 20100611
  Transmission Date: 20101027
  Serious: Yes (Hospitalization, Other)
  Sender: FDA-Public Use
  Company Number: US-MERCK-1005USA04389

PATIENT
  Age: 50 Year
  Sex: Male

DRUGS (4)
  1. ISENTRESS [Suspect]
     Indication: HIV INFECTION
     Route: 048
  2. PREZISTA [Concomitant]
     Route: 065
  3. INTELENCE [Concomitant]
     Route: 065
  4. STATIN (UNSPECIFIED) [Concomitant]
     Route: 065

REACTIONS (1)
  - ANGINA PECTORIS [None]
